FAERS Safety Report 25376392 (Version 1)
Quarter: 2025Q2

REPORT INFORMATION
  Report Type: Spontaneous
  Country: ES (occurrence: ES)
  Receive Date: 20250529
  Receipt Date: 20250529
  Transmission Date: 20250716
  Serious: Yes (Life-Threatening, Hospitalization)
  Sender: JOHNSON AND JOHNSON
  Company Number: None

PATIENT
  Age: 75 Year
  Sex: Female

DRUGS (12)
  1. DARZALEX [Suspect]
     Active Substance: DARATUMUMAB
     Indication: Plasma cell myeloma
     Dosage: 1800MG SUBCUT?NEOS/ 15 D?AS
     Route: 058
     Dates: start: 20250122, end: 20250416
  2. ACYCLOVIR [Suspect]
     Active Substance: ACYCLOVIR
     Indication: Antiviral prophylaxis
     Dosage: 800MG/24H
     Route: 048
     Dates: start: 20250122, end: 20250429
  3. LENALIDOMIDE [Suspect]
     Active Substance: LENALIDOMIDE
     Indication: Plasma cell myeloma
     Dosage: 15MG/24H, IN CYCLES OF 21 DAYS, LAST STARTED ON 04/16
     Route: 048
     Dates: start: 20250122, end: 20250429
  4. LEVOFLOXACIN [Suspect]
     Active Substance: LEVOFLOXACIN
     Indication: Antibiotic prophylaxis
     Dosage: 500MG/24H
     Route: 048
     Dates: start: 20250122, end: 20250429
  5. SULFAMETHOXAZOLE\TRIMETHOPRIM [Suspect]
     Active Substance: SULFAMETHOXAZOLE\TRIMETHOPRIM
     Indication: Antibiotic prophylaxis
     Dosage: 1 COMPRIMIDO L-M-V
     Route: 048
     Dates: start: 20250122, end: 20250429
  6. ARANESP [Concomitant]
     Active Substance: DARBEPOETIN ALFA
     Indication: Anaemia
     Dosage: SEMANAL
     Route: 058
     Dates: start: 20250122, end: 20250429
  7. ZOLEDRONIC ACID [Concomitant]
     Active Substance: ZOLEDRONIC ACID
     Indication: Plasma cell myeloma
     Dosage: 4MG/ MENSUAL
     Route: 042
     Dates: start: 20250319
  8. FILGRASTIM [Concomitant]
     Active Substance: FILGRASTIM
     Indication: Neutropenia
     Route: 058
     Dates: start: 20250212, end: 20250304
  9. Dexametasona 40 mg [Concomitant]
     Indication: Plasma cell myeloma
     Dosage: 40MG, WEDNESDAY AND THURSDAY
     Route: 048
     Dates: start: 20250122
  10. ASPIRIN [Concomitant]
     Active Substance: ASPIRIN
     Indication: Product used for unknown indication
     Route: 048
     Dates: start: 20250122, end: 20250429
  11. ESCITALOPRAM OXALATE [Concomitant]
     Active Substance: ESCITALOPRAM OXALATE
     Indication: Product used for unknown indication
     Route: 048
     Dates: start: 20240226, end: 20250429
  12. CANDESARTAN CINFA [Concomitant]
     Indication: Hypertension
     Route: 048
     Dates: start: 20230120, end: 20250429

REACTIONS (3)
  - Hepatic cytolysis [Recovering/Resolving]
  - Hyperbilirubinaemia [Recovering/Resolving]
  - Hypocoagulable state [Recovered/Resolved]

NARRATIVE: CASE EVENT DATE: 20250428
